FAERS Safety Report 9103676 (Version 4)
Quarter: 2014Q2

REPORT INFORMATION
  Report Type: Spontaneous
  Country: US (occurrence: US)
  Receive Date: 20130219
  Receipt Date: 20140408
  Transmission Date: 20141212
  Serious: Yes (Hospitalization, Other)
  Sender: FDA-Public Use
  Company Number: US-BAYER-2013-018051

PATIENT
  Age: 23 Year
  Sex: Female
  Weight: 83.9 kg

DRUGS (1)
  1. MIRENA [Suspect]
     Indication: CONTRACEPTION
     Dosage: 20 MCG/24HR, CONT
     Route: 015
     Dates: start: 20080128, end: 20121219

REACTIONS (15)
  - Uterine perforation [None]
  - Genital haemorrhage [Recovered/Resolved]
  - Abortion spontaneous [None]
  - Pregnancy with contraceptive device [None]
  - Infertility female [None]
  - Abdominal pain [None]
  - Drug ineffective [None]
  - Off label use [None]
  - Menstruation irregular [None]
  - Depression [None]
  - Emotional distress [None]
  - Pain [None]
  - Injury [None]
  - Stress [None]
  - Anxiety [None]
